FAERS Safety Report 9737136 (Version 1)
Quarter: 2013Q4

REPORT INFORMATION
  Report Type: Spontaneous
  Country: AT (occurrence: AT)
  Receive Date: 20131206
  Receipt Date: 20131206
  Transmission Date: 20140711
  Serious: No
  Sender: FDA-Public Use
  Company Number: AT-UCBSA-104603

PATIENT
  Sex: Female

DRUGS (4)
  1. VIMPAT [Suspect]
     Indication: EPILEPSY
     Route: 048
  2. VIMPAT [Suspect]
     Indication: EPILEPSY
     Dosage: 2X 150 MG
     Route: 048
  3. LEVETIRACETAM UCB [Suspect]
     Indication: EPILEPSY
     Dosage: 2X 1500 MG
     Route: 048
  4. TOPIRAMAT [Concomitant]
     Indication: EPILEPSY

REACTIONS (2)
  - Metrorrhagia [Unknown]
  - Salivary hypersecretion [Unknown]
